FAERS Safety Report 8926071 (Version 1)
Quarter: 2012Q4

REPORT INFORMATION
  Report Type: 
  Country: US (occurrence: US)
  Receive Date: 20121126
  Receipt Date: 20121126
  Transmission Date: 20130627
  Serious: No
  Sender: FDA-Public Use
  Company Number: US-JNJFOC-20121108202

PATIENT
  Age: 40 Year
  Sex: Male
  Weight: 95.26 kg

DRUGS (3)
  1. FENTANYL [Suspect]
     Indication: BACK PAIN
     Route: 062
  2. FENTANYL [Suspect]
     Indication: BACK PAIN
     Dosage: NDC: 0781-7243-55
     Route: 062
     Dates: start: 2012
  3. OXYCODONE [Concomitant]
     Indication: BREAKTHROUGH PAIN
     Route: 048
     Dates: start: 2012

REACTIONS (4)
  - Hypertension [Unknown]
  - Application site pain [Recovering/Resolving]
  - Application site rash [Recovering/Resolving]
  - Drug dose omission [Unknown]
